FAERS Safety Report 19728310 (Version 6)
Quarter: 2022Q2

REPORT INFORMATION
  Report Type: Report from Study
  Country: PL (occurrence: PL)
  Receive Date: 20210820
  Receipt Date: 20220524
  Transmission Date: 20220721
  Serious: Yes (Death, Life-Threatening, Hospitalization, Disabling)
  Sender: FDA-Public Use
  Company Number: PL-JNJFOC-20210827945

PATIENT
  Age: 57 Year
  Sex: Male
  Weight: 83.5 kg

DRUGS (23)
  1. SELEXIPAG [Suspect]
     Active Substance: SELEXIPAG
     Indication: Pulmonary hypertension
     Route: 048
     Dates: start: 20200207, end: 20200214
  2. SELEXIPAG [Suspect]
     Active Substance: SELEXIPAG
     Route: 048
     Dates: start: 20200214, end: 20200228
  3. SELEXIPAG [Suspect]
     Active Substance: SELEXIPAG
     Route: 048
     Dates: start: 20200228, end: 20200313
  4. SELEXIPAG [Suspect]
     Active Substance: SELEXIPAG
     Route: 048
     Dates: start: 20200313, end: 20200327
  5. SELEXIPAG [Suspect]
     Active Substance: SELEXIPAG
     Route: 048
     Dates: start: 20200327, end: 20200410
  6. SELEXIPAG [Suspect]
     Active Substance: SELEXIPAG
     Route: 048
     Dates: start: 20200410, end: 20200417
  7. SELEXIPAG [Suspect]
     Active Substance: SELEXIPAG
     Route: 048
     Dates: start: 20200417, end: 20200424
  8. SELEXIPAG [Suspect]
     Active Substance: SELEXIPAG
     Route: 048
     Dates: start: 20200424, end: 20210810
  9. FUROSEMIDE [Concomitant]
     Active Substance: FUROSEMIDE
     Indication: Pulmonary hypertension
     Route: 048
     Dates: start: 20160401
  10. FUROSEMIDE [Concomitant]
     Active Substance: FUROSEMIDE
     Route: 042
     Dates: start: 20210212
  11. FUROSEMIDE [Concomitant]
     Active Substance: FUROSEMIDE
     Route: 042
     Dates: start: 20200617, end: 20200702
  12. RIOCIGUAT [Concomitant]
     Active Substance: RIOCIGUAT
     Indication: Pulmonary hypertension
     Route: 048
     Dates: start: 20160626
  13. ROSUVASTATIN [Concomitant]
     Active Substance: ROSUVASTATIN
     Indication: Hypertriglyceridaemia
     Route: 048
     Dates: start: 20160331
  14. POTASSIUM [Concomitant]
     Active Substance: POTASSIUM
     Route: 048
     Dates: start: 20160401
  15. BIOSOTAL [Concomitant]
     Indication: Myocardial infarction
     Route: 048
     Dates: start: 20160401
  16. EPLERENONE [Concomitant]
     Active Substance: EPLERENONE
     Indication: Pulmonary hypertension
     Route: 048
     Dates: start: 20160401
  17. WARFARIN [Concomitant]
     Active Substance: WARFARIN
     Indication: Pulmonary hypertension
     Route: 048
     Dates: start: 20160331
  18. HYDROCHLOROTHIAZIDE [Concomitant]
     Active Substance: HYDROCHLOROTHIAZIDE
     Dates: start: 202102
  19. TORSEMIDE [Concomitant]
     Active Substance: TORSEMIDE
     Indication: Pulmonary hypertension
     Route: 048
     Dates: start: 20160401
  20. TORSEMIDE [Concomitant]
     Active Substance: TORSEMIDE
     Indication: Ascites
     Route: 048
     Dates: start: 20200507
  21. MAGNESIUM [Concomitant]
     Active Substance: MAGNESIUM
     Route: 048
     Dates: start: 20160331
  22. PANTOPRAZOLE [Concomitant]
     Active Substance: PANTOPRAZOLE
     Indication: Prophylaxis
     Route: 048
     Dates: start: 20160331
  23. OXYGEN [Concomitant]
     Active Substance: OXYGEN
     Indication: Hypoxia
     Route: 055
     Dates: start: 20170522

REACTIONS (4)
  - Multiple organ dysfunction syndrome [Fatal]
  - Cardiac arrest [Fatal]
  - Urethral cancer [Not Recovered/Not Resolved]
  - Right ventricular failure [Not Recovered/Not Resolved]

NARRATIVE: CASE EVENT DATE: 20210615
